FAERS Safety Report 5372095-2 (Version None)
Quarter: 2007Q2

REPORT INFORMATION
  Report Type: 
  Country: None (occurrence: None)
  Receive Date: 20070615
  Receipt Date: 20070502
  Transmission Date: 20071010
  Serious: No
  Sender: FDA-Public Use
  Company Number: SP01232

PATIENT
  Sex: Male

DRUGS (1)
  1. XIFAXAN [Suspect]
     Indication: CROHN'S DISEASE
     Dosage: (DURATION: FOR YEARS)

REACTIONS (1)
  - DRUG INEFFECTIVE [None]
